FAERS Safety Report 4529188-9 (Version None)
Quarter: 2004Q4

REPORT INFORMATION
  Report Type: 
  Country: None (occurrence: None)
  Receive Date: 20041214
  Receipt Date: 20041126
  Transmission Date: 20050328
  Serious: Yes (Hospitalization)
  Sender: FDA-Public Use
  Company Number: SP-2004-001955

PATIENT
  Age: 66 Year
  Sex: Female

DRUGS (2)
  1. VOTUM 20 MG [Suspect]
     Indication: HYPERTENSION
     Dosage: 20 MG QD PO
     Route: 048
     Dates: start: 20021107, end: 20030821
  2. CIPRAMIL [Concomitant]

REACTIONS (1)
  - HYPERTENSIVE CRISIS [None]
